FAERS Safety Report 8771603 (Version 1)
Quarter: 2012Q4

REPORT INFORMATION
  Report Type: 
  Country: US (occurrence: US)
  Receive Date: 20120905
  Receipt Date: 20120905
  Transmission Date: 20130627
  Serious: No
  Sender: FDA-Public Use
  Company Number: US-BAYER-2012-091437

PATIENT
  Age: 8 Year
  Sex: Female

DRUGS (1)
  1. GADAVIST [Suspect]
     Dosage: 2.5 ml, ONCE
     Route: 042
     Dates: start: 20120831, end: 20120831

REACTIONS (1)
  - Vomiting [None]
